FAERS Safety Report 23527584 (Version 1)
Quarter: 2024Q1

REPORT INFORMATION
  Report Type: Spontaneous
  Country: US (occurrence: US)
  Receive Date: 20240215
  Receipt Date: 20240215
  Transmission Date: 20240410
  Serious: Yes (Other)
  Sender: FDA-Public Use
  Company Number: US-FreseniusKabi-FK202402572

PATIENT
  Age: 74 Year
  Sex: Male

DRUGS (4)
  1. METHOTREXATE [Suspect]
     Active Substance: METHOTREXATE
     Indication: Central nervous system lymphoma
     Dosage: CYCLE 6: R-MVP REGIMEN?HIGH DOSE (3.5 G/M2)
  2. RITUXIMAB [Concomitant]
     Active Substance: RITUXIMAB
     Indication: Central nervous system lymphoma
     Dosage: R-MVP
  3. VINCRISTINE [Concomitant]
     Active Substance: VINCRISTINE
     Indication: Central nervous system lymphoma
     Dosage: R-MVP
  4. PROCARBAZINE [Concomitant]
     Active Substance: PROCARBAZINE
     Indication: Central nervous system lymphoma
     Dosage: R-MVP

REACTIONS (2)
  - Acute kidney injury [Unknown]
  - Toxicity to various agents [Recovering/Resolving]
